FAERS Safety Report 21026545 (Version 1)
Quarter: 2022Q2

REPORT INFORMATION
  Report Type: Spontaneous
  Country: US (occurrence: None)
  Receive Date: 20220629
  Receipt Date: 20220629
  Transmission Date: 20220721
  Serious: Yes (Death)
  Sender: FDA-Public Use
  Company Number: None

PATIENT
  Age: 58 Year
  Sex: Male
  Weight: 135.17 kg

DRUGS (12)
  1. IMATINIB [Suspect]
     Active Substance: IMATINIB
     Dosage: FREQUENCY : DAILY;?
     Route: 048
  2. ASPIRIN [Concomitant]
     Active Substance: ASPIRIN
  3. ATORVASTATIN [Concomitant]
     Active Substance: ATORVASTATIN
  4. LASIX [Concomitant]
     Active Substance: FUROSEMIDE
  5. GABAPENTIN [Concomitant]
     Active Substance: GABAPENTIN
  6. GLEEVEC [Concomitant]
     Active Substance: IMATINIB MESYLATE
  7. LANTUS [Concomitant]
     Active Substance: INSULIN GLARGINE
  8. MELATONIN [Concomitant]
  9. LOPRESSOR [Concomitant]
     Active Substance: METOPROLOL TARTRATE
  10. NOVOLIN NOS [Concomitant]
     Active Substance: INSULIN HUMAN
  11. NOVOLOG [Concomitant]
  12. STOOL SOFTENER [Concomitant]

REACTIONS (1)
  - Death [None]

NARRATIVE: CASE EVENT DATE: 20220621
